FAERS Safety Report 5930435-7 (Version None)
Quarter: 2008Q4

REPORT INFORMATION
  Report Type: 
  Country: None (occurrence: None)
  Receive Date: 20081022
  Receipt Date: 20081006
  Transmission Date: 20090506
  Serious: Yes (Death)
  Sender: FDA-Public Use
  Company Number: 8037357

PATIENT
  Sex: Female

DRUGS (3)
  1. OXYCODONE HCL [Suspect]
  2. LORTAB [Suspect]
  3. LORTAB [Concomitant]

REACTIONS (1)
  - ACCIDENTAL OVERDOSE [None]
